FAERS Safety Report 9553952 (Version 1)
Quarter: 2013Q3

REPORT INFORMATION
  Report Type: Spontaneous
  Country: US (occurrence: US)
  Receive Date: 20130925
  Receipt Date: 20130925
  Transmission Date: 20140515
  Serious: No
  Sender: FDA-Public Use
  Company Number: US-TEVA-434412USA

PATIENT
  Age: 70 Year
  Sex: Female
  Weight: 64.92 kg

DRUGS (3)
  1. AZILECT [Suspect]
     Indication: PARKINSON^S DISEASE
     Dates: start: 2011
  2. ENTACAPONE [Interacting]
     Indication: PARKINSON^S DISEASE
     Dosage: 600 MILLIGRAM DAILY;
     Route: 048
     Dates: start: 20130920
  3. CARBIDOPA W/LEVODOPA [Concomitant]
     Indication: PARKINSON^S DISEASE
     Dosage: 25MG CARBIDOPA/100MG LEVODOPA
     Route: 048

REACTIONS (11)
  - Drug interaction [Unknown]
  - Restless legs syndrome [Unknown]
  - Paraesthesia [Not Recovered/Not Resolved]
  - Coordination abnormal [Not Recovered/Not Resolved]
  - Anxiety [Not Recovered/Not Resolved]
  - Tremor [Not Recovered/Not Resolved]
  - Agitation [Not Recovered/Not Resolved]
  - Agitation [Not Recovered/Not Resolved]
  - Confusional state [Not Recovered/Not Resolved]
  - Dizziness [Not Recovered/Not Resolved]
  - Weight decreased [Unknown]
